FAERS Safety Report 13510909 (Version 1)
Quarter: 2017Q2

REPORT INFORMATION
  Report Type: Spontaneous
  Country: DE (occurrence: DE)
  Receive Date: 20170503
  Receipt Date: 20170503
  Transmission Date: 20170830
  Serious: Yes (Hospitalization)
  Sender: FDA-Public Use
  Company Number: DE-TEVA-764746GER

PATIENT
  Age: 62 Year
  Sex: Female

DRUGS (15)
  1. REMERGIL [Suspect]
     Active Substance: MIRTAZAPINE
     Route: 048
     Dates: start: 20160830, end: 20160909
  2. REMERGIL [Suspect]
     Active Substance: MIRTAZAPINE
     Route: 048
     Dates: start: 20160824, end: 20160829
  3. DOXEPIN [Suspect]
     Active Substance: DOXEPIN
     Route: 048
     Dates: start: 20160907, end: 20160910
  4. REMERGIL [Suspect]
     Active Substance: MIRTAZAPINE
     Route: 048
     Dates: start: 20160817, end: 20160823
  5. REMERGIL [Suspect]
     Active Substance: MIRTAZAPINE
     Route: 048
     Dates: start: 20160910, end: 20160918
  6. ELIQUIS [Concomitant]
     Active Substance: APIXABAN
     Dates: start: 201601
  7. SEROQUEL [Concomitant]
     Active Substance: QUETIAPINE FUMARATE
     Dates: start: 20160915
  8. DIAZEPAM. [Concomitant]
     Active Substance: DIAZEPAM
     Dates: start: 20160723
  9. DIAZEPAM. [Concomitant]
     Active Substance: DIAZEPAM
     Dates: start: 20160907
  10. DOXEPIN [Suspect]
     Active Substance: DOXEPIN
     Route: 048
     Dates: start: 20160901, end: 20160901
  11. KINZALMONO [Concomitant]
     Active Substance: TELMISARTAN
     Dates: start: 201601
  12. MAGNESIUM VERLA N DRAGEES [Concomitant]
     Dates: start: 20160719
  13. DOXEPIN [Suspect]
     Active Substance: DOXEPIN
     Route: 048
     Dates: start: 20160902, end: 20160906
  14. REMERGIL [Suspect]
     Active Substance: MIRTAZAPINE
     Route: 048
     Dates: start: 20160816, end: 20160817
  15. BISOHEXAL [Concomitant]
     Active Substance: BISOPROLOL FUMARATE
     Dates: start: 201601

REACTIONS (1)
  - Hyponatraemia [Recovering/Resolving]

NARRATIVE: CASE EVENT DATE: 20160909
